FAERS Safety Report 8407262-4 (Version None)
Quarter: 2012Q2

REPORT INFORMATION
  Report Type: 
  Country: None (occurrence: None)
  Receive Date: 20120604
  Receipt Date: 20120521
  Transmission Date: 20120825
  Serious: Yes (Hospitalization)
  Sender: FDA-Public Use
  Company Number: US-ROCHE-1071188

PATIENT
  Age: 63 Year
  Sex: Male
  Weight: 70.37 kg

DRUGS (12)
  1. TRAZODONE HCL [Concomitant]
     Dates: start: 20110413
  2. FISH OIL [Concomitant]
     Dates: start: 20120413
  3. PREDNISONE [Concomitant]
     Dates: start: 20110413
  4. CELLCEPT [Suspect]
     Indication: IMMUNOSUPPRESSION
     Dosage: 750/500/750 PER DAY
     Dates: start: 20110527, end: 20110605
  5. AMLODIPINE BESYLATE [Suspect]
     Indication: HYPERTENSION
     Dates: start: 20110530, end: 20110602
  6. POTASSIUM PHOSPHATES [Concomitant]
     Dates: start: 20120527
  7. WELCHOL [Concomitant]
     Dates: start: 20110531
  8. TACROLIMUS [Suspect]
     Indication: PROPHYLAXIS
     Route: 048
     Dates: start: 20110409, end: 20110601
  9. BACTRIM [Concomitant]
     Dates: start: 20120415
  10. MULTI-VITAMIN [Concomitant]
     Dates: start: 20120413
  11. TACROLIMUS [Suspect]
  12. VALCYTE [Concomitant]
     Dates: start: 20110413

REACTIONS (2)
  - DIARRHOEA [None]
  - ELECTROLYTE IMBALANCE [None]
